FAERS Safety Report 15839519 (Version 1)
Quarter: 2019Q1

REPORT INFORMATION
  Report Type: Spontaneous
  Country: US (occurrence: US)
  Receive Date: 20190117
  Receipt Date: 20190117
  Transmission Date: 20190417
  Serious: No
  Sender: FDA-Public Use
  Company Number: US-SIGMAPHARM LABORATORIES, LLC-2018SIG00041

PATIENT
  Age: 61 Year
  Sex: Female
  Weight: 74.83 kg

DRUGS (5)
  1. UNSPECIFIED MINERALS [Concomitant]
  2. UNSPECIFIED AMINO ACIDS [Concomitant]
  3. LIOTHYRONINE SODIUM. [Suspect]
     Active Substance: LIOTHYRONINE SODIUM
     Indication: HYPERTHYROIDISM
     Dosage: 5 MCG, 2X/DAY IN THE AFTERNOON
     Route: 048
     Dates: start: 2013
  4. LIOTHYRONINE SODIUM. [Suspect]
     Active Substance: LIOTHYRONINE SODIUM
     Indication: HYPERTHYROIDISM
     Dosage: 25 MCG, 1X/DAY IN THE MORNING
     Route: 048
     Dates: start: 2013
  5. UNSPECIFIED VITAMINS [Concomitant]
     Active Substance: VITAMINS

REACTIONS (5)
  - Weight increased [Not Recovered/Not Resolved]
  - Hyperhidrosis [Unknown]
  - Abdominal pain upper [Not Recovered/Not Resolved]
  - Gastric ulcer [Recovered/Resolved]
  - Feeling hot [Unknown]

NARRATIVE: CASE EVENT DATE: 201711
